FAERS Safety Report 12222293 (Version 1)
Quarter: 2016Q1

REPORT INFORMATION
  Report Type: Report from Study
  Country: BR (occurrence: BR)
  Receive Date: 20160330
  Receipt Date: 20160330
  Transmission Date: 20160526
  Serious: Yes (Other)
  Sender: FDA-Public Use
  Company Number: BR-JNJFOC-20160313504

PATIENT
  Age: 71 Year
  Sex: Female

DRUGS (1)
  1. SIMPONI [Suspect]
     Active Substance: GOLIMUMAB
     Indication: RHEUMATOID ARTHRITIS
     Route: 058
     Dates: start: 20160213

REACTIONS (6)
  - Gastric disorder [Unknown]
  - Oropharyngeal pain [Unknown]
  - Inappropriate schedule of drug administration [Unknown]
  - Herpes zoster [Unknown]
  - Wound [Unknown]
  - Cough [Unknown]

NARRATIVE: CASE EVENT DATE: 2016
